FAERS Safety Report 5039175-2 (Version None)
Quarter: 2006Q2

REPORT INFORMATION
  Report Type: 
  Country: None (occurrence: None)
  Receive Date: 20060623
  Receipt Date: 20060614
  Transmission Date: 20061013
  Serious: Yes (Death)
  Sender: FDA-Public Use
  Company Number: HQWYE233515JUN06

PATIENT
  Age: 20 Year
  Sex: Male

DRUGS (2)
  1. EFFEXOR XR [Suspect]
     Indication: MAJOR DEPRESSION
     Dosage: SEE IMAGE
     Route: 048
     Dates: start: 20060217, end: 20060221
  2. EFFEXOR XR [Suspect]
     Indication: MAJOR DEPRESSION
     Dosage: SEE IMAGE
     Route: 048
     Dates: start: 20060222

REACTIONS (7)
  - ABNORMAL BEHAVIOUR [None]
  - COMPLETED SUICIDE [None]
  - CRYING [None]
  - EUPHORIC MOOD [None]
  - FLAT AFFECT [None]
  - INJURY ASPHYXIATION [None]
  - SOCIAL AVOIDANT BEHAVIOUR [None]
